FAERS Safety Report 10640641 (Version 2)
Quarter: 2015Q1

REPORT INFORMATION
  Report Type: Spontaneous
  Country: US (occurrence: None)
  Receive Date: 20141205
  Receipt Date: 20150310
  Transmission Date: 20150720
  Serious: Yes (Hospitalization)
  Sender: FDA-Public Use
  Company Number: US-001468

PATIENT
  Sex: Male
  Weight: 83.92 kg

DRUGS (11)
  1. SOLUTIONS FOR PARENTERAL NUTRITION [Concomitant]
     Active Substance: AMINO ACIDS\DEXTROSE\ELECTROLYTES NOS
  2. FUROSEMIDE. [Concomitant]
     Active Substance: FUROSEMIDE
  3. CODEINE [Concomitant]
     Active Substance: CODEINE
  4. NORTRIPTYLINE [Concomitant]
     Active Substance: NORTRIPTYLINE
  5. METOPROLOL [Concomitant]
     Active Substance: METOPROLOL
  6. TANSULOSINA [Concomitant]
  7. MULTIVITAMINS [Concomitant]
     Active Substance: VITAMINS
  8. ALLOPURINOL. [Concomitant]
     Active Substance: ALLOPURINOL
  9. GATTEX [Suspect]
     Active Substance: TEDUGLUTIDE\WATER
     Indication: SHORT-BOWEL SYNDROME
     Route: 058
     Dates: start: 20130802
  10. PRILOSEC [Concomitant]
     Active Substance: OMEPRAZOLE MAGNESIUM
  11. ENAPRIL [Concomitant]
     Active Substance: ENALAPRIL

REACTIONS (3)
  - Fluid overload [None]
  - Cardiac failure congestive [None]
  - Weight increased [None]

NARRATIVE: CASE EVENT DATE: 2014
